FAERS Safety Report 12634819 (Version 1)
Quarter: 2016Q3

REPORT INFORMATION
  Report Type: Spontaneous
  Country: US (occurrence: US)
  Receive Date: 20160808
  Receipt Date: 20160808
  Transmission Date: 20161109
  Serious: No
  Sender: FDA-Public Use
  Company Number: US-WARNER CHILCOTT, LLC-1055947

PATIENT
  Age: 85 Year
  Sex: Female

DRUGS (3)
  1. ASACOL HD [Suspect]
     Active Substance: MESALAMINE
     Indication: COLITIS
     Route: 048
     Dates: start: 2011
  2. PROBIOTICS NOS [Concomitant]
     Active Substance: PROBIOTICS NOS
  3. CHOLESTYRAMINE. [Concomitant]
     Active Substance: CHOLESTYRAMINE

REACTIONS (2)
  - Diarrhoea [Not Recovered/Not Resolved]
  - Off label use [None]

NARRATIVE: CASE EVENT DATE: 2011
